FAERS Safety Report 8801339 (Version 2)
Quarter: 2012Q4

REPORT INFORMATION
  Report Type: 
  Country: GB (occurrence: GB)
  Receive Date: 20120921
  Receipt Date: 20121008
  Transmission Date: 20130627
  Serious: Yes (Death, Hospitalization, Other)
  Sender: FDA-Public Use
  Company Number: GB-NOVOPROD-359831

PATIENT
  Age: 28 Year
  Sex: Male

DRUGS (3)
  1. NOVOSEVEN [Suspect]
     Indication: HAEMOPHILIA A WITH ANTI FACTOR VIII
     Dosage: UNK
     Route: 065
     Dates: start: 20100908, end: 20100910
  2. FEIBA [Suspect]
     Indication: HAEMOPHILIA A WITH ANTI FACTOR VIII
     Dosage: UNK
     Route: 065
     Dates: start: 20100908, end: 20100910
  3. OCTANATE [Suspect]
     Indication: IMMUNE TOLERANCE INDUCTION
     Dosage: 3000 IU three times/week
     Route: 042
     Dates: start: 200911, end: 201009

REACTIONS (3)
  - Haemorrhage [Fatal]
  - Cardio-respiratory arrest [Fatal]
  - Drug ineffective [Unknown]
